FAERS Safety Report 9203800 (Version 2)
Quarter: 2013Q2

REPORT INFORMATION
  Report Type: Spontaneous
  Country: US (occurrence: US)
  Receive Date: 20130402
  Receipt Date: 20130509
  Transmission Date: 20140414
  Serious: No
  Sender: FDA-Public Use
  Company Number: US-PFIZER INC-2013100698

PATIENT
  Age: 41 Year
  Sex: Female
  Weight: 59 kg

DRUGS (6)
  1. LYRICA [Suspect]
     Indication: NEUROPATHY PERIPHERAL
     Dosage: 150 MG, 2X/DAY
     Dates: end: 2013
  2. LYRICA [Suspect]
     Dosage: 150 MG, 2X/DAY
     Dates: end: 20130323
  3. GABAPENTIN [Suspect]
     Indication: NEUROPATHY PERIPHERAL
     Dosage: UNK
  4. GABAPENTIN [Suspect]
     Dosage: 300 MG, 3X/DAY
     Dates: start: 20130323
  5. LEVEMIR [Suspect]
     Indication: DIABETES MELLITUS
     Dosage: UNK
  6. HUMALOG [Suspect]
     Indication: DIABETES MELLITUS
     Dosage: UNK

REACTIONS (2)
  - Nausea [Not Recovered/Not Resolved]
  - Blood glucose increased [Not Recovered/Not Resolved]
